FAERS Safety Report 11743152 (Version 1)
Quarter: 2015Q4

REPORT INFORMATION
  Report Type: Spontaneous
  Country: US (occurrence: None)
  Receive Date: 20151116
  Receipt Date: 20151116
  Transmission Date: 20160304
  Serious: Yes (Other)
  Sender: FDA-Public Use
  Company Number: US-MDT-ADR-2015-02156

PATIENT
  Age: 35 Year
  Sex: Female

DRUGS (2)
  1. BACLOFEN INTRATHECAL (24 MCG/ML) [Suspect]
     Active Substance: BACLOFEN
     Indication: PAIN
     Dosage: 2.667 MCG/DAY
  2. MORPHINE INTRATHECAL (36 MG/ML) [Suspect]
     Active Substance: MORPHINE
     Dosage: 4 MG/DAY

REACTIONS (9)
  - Pain [None]
  - Synovial cyst [None]
  - No therapeutic response [None]
  - Hypoaesthesia oral [None]
  - Sensory disturbance [None]
  - Burning sensation [None]
  - Nerve compression [None]
  - Hypoaesthesia [None]
  - Spinal cord injury [None]
